FAERS Safety Report 20511513 (Version 1)
Quarter: 2022Q1

REPORT INFORMATION
  Report Type: Spontaneous
  Country: US (occurrence: None)
  Receive Date: 20220224
  Receipt Date: 20220224
  Transmission Date: 20220423
  Serious: Yes (Hospitalization)
  Sender: FDA-Public Use
  Company Number: None

PATIENT
  Age: 25 Year
  Sex: Female
  Weight: 64.7 kg

DRUGS (4)
  1. CYCLOPHOSPHAMIDE [Suspect]
     Active Substance: CYCLOPHOSPHAMIDE
     Dates: end: 20220121
  2. CYTARABINE [Suspect]
     Active Substance: CYTARABINE
     Dates: end: 20220121
  3. DEXAMETHASONE [Suspect]
     Active Substance: DEXAMETHASONE
     Dates: end: 20220121
  4. RITUXIMAB [Suspect]
     Active Substance: RITUXIMAB
     Dates: end: 20220121

REACTIONS (5)
  - Blood urine present [None]
  - Mouth ulceration [None]
  - SARS-CoV-2 test positive [None]
  - Thrombocytopenia [None]
  - Pyrexia [None]

NARRATIVE: CASE EVENT DATE: 20220207
